FAERS Safety Report 24091001 (Version 1)
Quarter: 2024Q3

REPORT INFORMATION
  Report Type: Spontaneous
  Country: FR (occurrence: FR)
  Receive Date: 20240715
  Receipt Date: 20240715
  Transmission Date: 20241017
  Serious: Yes (Hospitalization, Other)
  Sender: PIERRE FABRE MEDICAMENT
  Company Number: None

PATIENT
  Age: 20 Year
  Sex: Female
  Weight: 56 kg

DRUGS (1)
  1. PROPRANOLOL [Suspect]
     Active Substance: PROPRANOLOL HYDROCHLORIDE
     Indication: Toxicity to various agents
     Dosage: IN TOTAL
     Route: 048
     Dates: start: 20210525, end: 20210525

REACTIONS (5)
  - Bradycardia [Recovered/Resolved]
  - Hypotension [Recovered/Resolved]
  - Toxicity to various agents [Unknown]
  - Overdose [Unknown]
  - Product use issue [Unknown]

NARRATIVE: CASE EVENT DATE: 20210525
